FAERS Safety Report 18231402 (Version 2)
Quarter: 2020Q3

REPORT INFORMATION
  Report Type: Spontaneous
  Country: JP (occurrence: JP)
  Receive Date: 20200904
  Receipt Date: 20200917
  Transmission Date: 20201103
  Serious: Yes (Other)
  Sender: FDA-Public Use
  Company Number: JP-AMGEN-JPNSP2020143251

PATIENT
  Age: 9 Decade
  Sex: Male

DRUGS (3)
  1. PRALIA [Suspect]
     Active Substance: DENOSUMAB
     Indication: OSTEOPOROSIS
     Dosage: 60 MG, ONCE EVERY 6 MO
     Route: 058
     Dates: start: 20170712, end: 20190710
  2. ASPARA?CA [Concomitant]
     Active Substance: CALCIUM ASPARTATE
     Dosage: UNK
     Route: 065
  3. EDIROL [Concomitant]
     Active Substance: ELDECALCITOL
     Dosage: UNK
     Route: 065

REACTIONS (2)
  - Spinal fracture [Not Recovered/Not Resolved]
  - Myocardial infarction [Unknown]
